FAERS Safety Report 15906238 (Version 1)
Quarter: 2019Q1

REPORT INFORMATION
  Report Type: Spontaneous
  Country: FR (occurrence: FR)
  Receive Date: 20190204
  Receipt Date: 20190204
  Transmission Date: 20190417
  Serious: Yes (Other)
  Sender: FDA-Public Use
  Company Number: FR-PFIZER INC-2019041107

PATIENT
  Age: 28 Year
  Sex: Female

DRUGS (4)
  1. DAFALGAN [Suspect]
     Active Substance: ACETAMINOPHEN
     Indication: SUICIDE ATTEMPT
     Dosage: 6 DF, 1X/DAY
     Route: 048
     Dates: start: 20170411, end: 20170411
  2. ZOLPIDEM [Suspect]
     Active Substance: ZOLPIDEM\ZOLPIDEM TARTRATE
     Indication: SUICIDE ATTEMPT
     Dosage: UNSPECIFIED
     Route: 048
     Dates: start: 20170411, end: 20170411
  3. DIARETYL [Suspect]
     Active Substance: LOPERAMIDE HYDROCHLORIDE
     Indication: SUICIDE ATTEMPT
     Dosage: 5 DF, 1X/DAY
     Route: 048
     Dates: start: 20170411, end: 20170411
  4. IBUPROFEN. [Suspect]
     Active Substance: IBUPROFEN
     Indication: SUICIDE ATTEMPT
     Dosage: 1400 MG, 1X/DAY
     Route: 048
     Dates: start: 20170411, end: 20170411

REACTIONS (5)
  - Overdose [Unknown]
  - Suicide attempt [Unknown]
  - Toxicity to various agents [Recovered/Resolved]
  - Mydriasis [Recovered/Resolved]
  - Somnolence [Recovered/Resolved]

NARRATIVE: CASE EVENT DATE: 20170411
